FAERS Safety Report 9441931 (Version 1)
Quarter: 2013Q3

REPORT INFORMATION
  Report Type: Spontaneous
  Country: FR (occurrence: FR)
  Receive Date: 20130806
  Receipt Date: 20130806
  Transmission Date: 20140515
  Serious: Yes (Hospitalization)
  Sender: FDA-Public Use
  Company Number: FR-ROCHE-1256789

PATIENT
  Age: 59 Year
  Sex: Male

DRUGS (5)
  1. CELLCEPT [Suspect]
     Indication: RENAL TRANSPLANT
     Route: 065
     Dates: start: 2009
  2. RAPAMUNE [Suspect]
     Indication: PRODUCT USED FOR UNKNOWN INDICATION
     Route: 065
     Dates: start: 2009
  3. BRICANYL [Concomitant]
  4. PREDNISONE [Concomitant]
     Route: 065
  5. ZOPICLONE [Concomitant]

REACTIONS (1)
  - Primary mediastinal large B-cell lymphoma recurrent [Not Recovered/Not Resolved]
